FAERS Safety Report 23100495 (Version 1)
Quarter: 2023Q4

REPORT INFORMATION
  Report Type: Spontaneous
  Country: US (occurrence: None)
  Receive Date: 20231020
  Receipt Date: 20231020
  Transmission Date: 20240110
  Serious: Yes (Death, Life-Threatening, Hospitalization)
  Sender: FDA-Public Use
  Company Number: None

PATIENT
  Age: 64 Year
  Sex: Male

DRUGS (1)
  1. PALIPERIDONE PALMITATE [Suspect]
     Active Substance: PALIPERIDONE PALMITATE
     Dates: start: 20230219, end: 20230226

REACTIONS (5)
  - Agranulocytosis [None]
  - Thrombocytopenia [None]
  - Aplastic anaemia [None]
  - Staphylococcal sepsis [None]
  - Enterococcal infection [None]

NARRATIVE: CASE EVENT DATE: 20230228
